FAERS Safety Report 19910249 (Version 2)
Quarter: 2021Q4

REPORT INFORMATION
  Report Type: Spontaneous
  Country: US (occurrence: US)
  Receive Date: 20211004
  Receipt Date: 20211018
  Transmission Date: 20220303
  Serious: Yes (Other)
  Sender: FDA-Public Use
  Company Number: US-DRREDDYS-LIT/USA/21/0141863

PATIENT
  Age: 5 Year
  Sex: Female

DRUGS (5)
  1. TOPOTECAN HYDROCHLORIDE [Suspect]
     Active Substance: TOPOTECAN HYDROCHLORIDE
     Indication: Rhabdomyosarcoma
  2. VINCRISTINE [Suspect]
     Active Substance: VINCRISTINE
     Indication: Embryonal rhabdomyosarcoma
  3. DACTINOMYCIN [Suspect]
     Active Substance: DACTINOMYCIN
     Indication: Embryonal rhabdomyosarcoma
  4. CYCLOPHOSPHAMIDE [Suspect]
     Active Substance: CYCLOPHOSPHAMIDE
     Indication: Embryonal rhabdomyosarcoma
  5. IRINOTECAN [Suspect]
     Active Substance: IRINOTECAN
     Indication: Rhabdomyosarcoma

REACTIONS (7)
  - Condition aggravated [Unknown]
  - Weight decreased [Unknown]
  - Activated partial thromboplastin time prolonged [Unknown]
  - Toxicity to various agents [Unknown]
  - Pyrexia [Unknown]
  - Vomiting [Unknown]
  - Abdominal pain [Unknown]
